FAERS Safety Report 7018515-9 (Version None)
Quarter: 2010Q3

REPORT INFORMATION
  Report Type: 
  Country: None (occurrence: None)
  Receive Date: 20100924
  Receipt Date: 20100914
  Transmission Date: 20110219
  Serious: Yes (Hospitalization)
  Sender: FDA-Public Use
  Company Number: 1000011816

PATIENT
  Age: 94 Year
  Sex: Female
  Weight: 65 kg

DRUGS (5)
  1. CITALOPRAM HYDROBROMIDE [Suspect]
     Indication: DEPRESSION
     Dosage: 10MG (10 MG, 1 IN 1 D), ORAL
     Route: 048
  2. ISKEDYL (ISKEDYL) (-ISKEDYL) [Concomitant]
  3. FENOFIBRATE [Concomitant]
  4. STRESAM (ETIFOXINE) [Concomitant]
  5. LECTIL (BETAHISTINE HYDROCHLORIDE) (BETAHISTINE HYDROCHLORIDE) [Concomitant]

REACTIONS (2)
  - HYPONATRAEMIA [None]
  - MALAISE [None]
